FAERS Safety Report 7516144-1 (Version None)
Quarter: 2011Q2

REPORT INFORMATION
  Report Type: 
  Country: None (occurrence: None)
  Receive Date: 20110601
  Receipt Date: 20110516
  Transmission Date: 20111010
  Serious: Yes (Hospitalization, Other)
  Sender: FDA-Public Use
  Company Number: US-AMGEN-USASP2011026816

PATIENT
  Age: 71 Year
  Sex: Female

DRUGS (1)
  1. ENBREL [Suspect]
     Indication: RHEUMATOID ARTHRITIS
     Dosage: 50 MG, QWK
     Dates: start: 20051001, end: 20110328

REACTIONS (5)
  - UPPER RESPIRATORY TRACT INFECTION [None]
  - THROMBOSIS [None]
  - VISION BLURRED [None]
  - INJECTION SITE PAIN [None]
  - MACULAR HOLE [None]
